FAERS Safety Report 15256179 (Version 1)
Quarter: 2018Q3

REPORT INFORMATION
  Report Type: Spontaneous
  Country: US (occurrence: US)
  Receive Date: 20180808
  Receipt Date: 20180808
  Transmission Date: 20181010
  Serious: No
  Sender: FDA-Public Use
  Company Number: US-GLAXOSMITHKLINE-US2018138451

PATIENT
  Age: 91 Year
  Sex: Female

DRUGS (1)
  1. ANORO ELLIPTA [Suspect]
     Active Substance: UMECLIDINIUM BROMIDE\VILANTEROL TRIFENATATE
     Indication: PRODUCT USED FOR UNKNOWN INDICATION
     Dosage: 1 PUFF(S), QD
     Route: 055
     Dates: start: 201710

REACTIONS (5)
  - Atrophic vulvovaginitis [Unknown]
  - Dysuria [Unknown]
  - Pollakiuria [Unknown]
  - Urethral pain [Unknown]
  - Pain [Unknown]

NARRATIVE: CASE EVENT DATE: 201804
